FAERS Safety Report 21915134 (Version 1)
Quarter: 2023Q1

REPORT INFORMATION
  Report Type: Spontaneous
  Country: US (occurrence: US)
  Receive Date: 20230126
  Receipt Date: 20230126
  Transmission Date: 20230418
  Serious: No
  Sender: FDA-Public Use
  Company Number: US-CATALYST PHARMACEUTICALS, INC-2022CAT00153

PATIENT
  Age: 14 Year
  Sex: Male

DRUGS (8)
  1. FIRDAPSE [Suspect]
     Active Substance: AMIFAMPRIDINE PHOSPHATE
     Indication: Myasthenia gravis
     Dosage: DISSOLVE 12 TABLETS IN 120 ML OF WATER
     Route: 048
     Dates: start: 20220617
  2. FIRDAPSE [Suspect]
     Active Substance: AMIFAMPRIDINE PHOSPHATE
     Dosage: 110 MG, DAILY (CRUSH 11 TABLETS AND MIX INTO 110 ML OF WATER, THEN TAKE 22 ML 5 TIMES DAILY)
     Route: 048
     Dates: start: 2022
  3. FIRDAPSE [Suspect]
     Active Substance: AMIFAMPRIDINE PHOSPHATE
     Dosage: 110 MG, DAILY (CRUSH 11 TABLETS AND MIX INTO 110 ML OF WATER, THEN TAKE 22 ML 5 TIMES DAILY)
     Route: 048
     Dates: end: 20220526
  4. FIRDAPSE [Suspect]
     Active Substance: AMIFAMPRIDINE PHOSPHATE
     Dosage: 95 MG, DAILY (DIVIDED DOSES)
     Route: 048
     Dates: start: 20220310, end: 2022
  5. FIRDAPSE [Suspect]
     Active Substance: AMIFAMPRIDINE PHOSPHATE
     Dosage: 110 MG, DAILY (CRUSH 11 TABLETS AND MIX INTO 110 ML OF WATER, THEN TAKE 22 ML 5 TIMES DAILY)
     Route: 048
     Dates: start: 20220617
  6. FIRDAPSE [Suspect]
     Active Substance: AMIFAMPRIDINE PHOSPHATE
     Dosage: 100 MG (10 TABLETS), DAILY
     Route: 048
     Dates: start: 2022, end: 2022
  7. FIRDAPSE [Suspect]
     Active Substance: AMIFAMPRIDINE PHOSPHATE
     Dosage: 120 MG, DAILY (CRUSH 12 TABLETS AND MIX INTO 110 ML OF WATER, THEN TAKE 22 ML 5 TIMES DAILY)
     Route: 048
     Dates: start: 20220527, end: 20220616
  8. MESTINON [Concomitant]
     Active Substance: PYRIDOSTIGMINE BROMIDE
     Dosage: 60 MG (5 ML), 5X/DAY
     Route: 048

REACTIONS (4)
  - Prescribed overdose [Not Recovered/Not Resolved]
  - Wrong technique in product usage process [Not Recovered/Not Resolved]
  - Off label use [Not Recovered/Not Resolved]
  - Wrong dose [Recovered/Resolved]

NARRATIVE: CASE EVENT DATE: 20220310
